FAERS Safety Report 16769678 (Version 2)
Quarter: 2020Q1

REPORT INFORMATION
  Report Type: Report from Study
  Country: BR (occurrence: BR)
  Receive Date: 20190903
  Receipt Date: 20200103
  Transmission Date: 20200409
  Serious: Yes (Other)
  Sender: FDA-Public Use
  Company Number: PHHY2019BR112532

PATIENT
  Age: 57 Year
  Sex: Male

DRUGS (2)
  1. COSENTYX [Suspect]
     Active Substance: SECUKINUMAB
     Indication: PRODUCT USED FOR UNKNOWN INDICATION
     Dosage: 2 DF, UNK
     Route: 065
     Dates: start: 20181214
  2. COSENTYX [Suspect]
     Active Substance: SECUKINUMAB
     Dosage: 1 UNK, UNK
     Route: 065
     Dates: start: 20190510

REACTIONS (4)
  - Incorrect dose administered [Unknown]
  - Oesophageal neoplasm [Unknown]
  - Device malfunction [Unknown]
  - Suspected product contamination [Unknown]

NARRATIVE: CASE EVENT DATE: 20190510
